FAERS Safety Report 5734134-6 (Version None)
Quarter: 2008Q2

REPORT INFORMATION
  Report Type: 
  Country: None (occurrence: None)
  Receive Date: 20080509
  Receipt Date: 20080506
  Transmission Date: 20081010
  Serious: Yes (Other)
  Sender: FDA-Public Use
  Company Number: US-PFIZER INC-2008039774

PATIENT
  Sex: Male
  Weight: 74.8 kg

DRUGS (37)
  1. DETROL LA [Suspect]
     Indication: URINARY INCONTINENCE
  2. COZAAR [Concomitant]
  3. NORVASC [Concomitant]
  4. GLIMEPIRIDE [Concomitant]
  5. GLIMEPIRIDE [Concomitant]
  6. FUROSEMIDE [Concomitant]
  7. FUROSEMIDE [Concomitant]
  8. OMEPRAZOLE [Concomitant]
  9. OMEPRAZOLE [Concomitant]
  10. TERAZOSIN HCL [Concomitant]
  11. TERAZOSIN HCL [Concomitant]
  12. TRAMADOL HCL [Concomitant]
  13. TRAMADOL HCL [Concomitant]
  14. TRAZODONE HCL [Concomitant]
  15. TRAZODONE HCL [Concomitant]
  16. ISOSORBIDE DINITRATE [Concomitant]
  17. ISOSORBIDE DINITRATE [Concomitant]
  18. KLOR-CON [Concomitant]
  19. KLOR-CON [Concomitant]
  20. FELODIPINE [Concomitant]
  21. FELODIPINE [Concomitant]
  22. SERTRALINE [Concomitant]
  23. SERTRALINE [Concomitant]
  24. DOCUSATE CALCIUM [Concomitant]
  25. DOCUSATE CALCIUM [Concomitant]
  26. MAGNESIUM [Concomitant]
  27. MAGNESIUM [Concomitant]
  28. PYRIDOXINE HYDROCHLORIDE [Concomitant]
  29. PYRIDOXINE HYDROCHLORIDE [Concomitant]
  30. ACETYLSALICYLIC ACID SRT [Concomitant]
  31. ACETYLSALICYLIC ACID SRT [Concomitant]
  32. IRON [Concomitant]
  33. IRON [Concomitant]
  34. FISH OIL [Concomitant]
  35. FISH OIL [Concomitant]
  36. TYLENOL [Concomitant]
  37. CITRUCEL [Concomitant]

REACTIONS (1)
  - GAIT DISTURBANCE [None]
